FAERS Safety Report 6465969-2 (Version None)
Quarter: 2009Q4

REPORT INFORMATION
  Report Type: 
  Country: None (occurrence: None)
  Receive Date: 20091202
  Receipt Date: 20091118
  Transmission Date: 20100525
  Serious: Yes (Death, Hospitalization)
  Sender: FDA-Public Use
  Company Number: FR-EISAI INC.-E7273-00098-SPO-FR

PATIENT
  Sex: Male

DRUGS (2)
  1. TARGRETIN [Suspect]
     Indication: MYCOSIS FUNGOIDES
     Dosage: UNKNOWN
     Route: 048
     Dates: end: 20081201
  2. METHOTREXATE [Concomitant]

REACTIONS (1)
  - ACUTE CORONARY SYNDROME [None]
